FAERS Safety Report 9128010 (Version 3)
Quarter: 2013Q2

REPORT INFORMATION
  Report Type: Report from Study
  Country: US (occurrence: US)
  Receive Date: 20130228
  Receipt Date: 20130501
  Transmission Date: 20140414
  Serious: Yes (Death, Hospitalization, Other)
  Sender: FDA-Public Use
  Company Number: US-ASTELLAS-2013US001752

PATIENT
  Age: 77 Year
  Sex: Female

DRUGS (1)
  1. ERLOTINIB TABLET [Suspect]
     Indication: METASTASES TO LUNG
     Dosage: 100 MG, UID/QD
     Route: 048
     Dates: start: 20130123

REACTIONS (7)
  - Incorrect dose administered [Unknown]
  - Hypokalaemia [Unknown]
  - Rib fracture [Unknown]
  - Rash [Unknown]
  - Eye irritation [Unknown]
  - Nausea [Unknown]
  - Malignant neoplasm progression [Fatal]
